FAERS Safety Report 7896166-1 (Version None)
Quarter: 2011Q4

REPORT INFORMATION
  Report Type: 
  Country: None (occurrence: None)
  Receive Date: 20111104
  Receipt Date: 20111104
  Transmission Date: 20120403
  Serious: Yes (Life-Threatening, Other)
  Sender: FDA-Public Use
  Company Number: None

PATIENT

DRUGS (1)
  1. CHILDREN'S ADVIL [Suspect]
     Indication: ACCIDENT
     Dosage: 2 TEAS 5:30 PM AND 6:00 PM ORAL
     Route: 048
     Dates: start: 20111023, end: 20111023

REACTIONS (3)
  - EYE SWELLING [None]
  - THROAT TIGHTNESS [None]
  - SWELLING FACE [None]
